FAERS Safety Report 5126580-9 (Version None)
Quarter: 2006Q4

REPORT INFORMATION
  Report Type: 
  Country: None (occurrence: None)
  Receive Date: 20061012
  Receipt Date: 20061012
  Transmission Date: 20070319
  Serious: Yes (Hospitalization)
  Sender: FDA-Public Use
  Company Number: None

PATIENT
  Sex: Male

DRUGS (1)
  1. PHENYTOIN [Suspect]
     Indication: CONVULSION PROPHYLAXIS
     Dosage: 200 MG BID PO
     Route: 048
     Dates: start: 20060814, end: 20060815

REACTIONS (2)
  - PENIS DISORDER [None]
  - STEVENS-JOHNSON SYNDROME [None]
